FAERS Safety Report 5019417-X (Version None)
Quarter: 2006Q2

REPORT INFORMATION
  Report Type: 
  Country: None (occurrence: None)
  Receive Date: 20060531
  Receipt Date: 20060519
  Transmission Date: 20061013
  Serious: Yes (Hospitalization)
  Sender: FDA-Public Use
  Company Number: ENT 2006-0073

PATIENT
  Age: 48 Year
  Sex: Male

DRUGS (1)
  1. COMTAN [Suspect]

REACTIONS (1)
  - PLEURAL FIBROSIS [None]
